FAERS Safety Report 4707246-3 (Version None)
Quarter: 2005Q2

REPORT INFORMATION
  Report Type: 
  Country: None (occurrence: None)
  Receive Date: 20050629
  Receipt Date: 20050621
  Transmission Date: 20051028
  Serious: Yes (Hospitalization)
  Sender: FDA-Public Use
  Company Number: 2005081862

PATIENT
  Sex: Female

DRUGS (1)
  1. VISTARIL (IM) (HYDROXYZINE HYDROCHLORIDE) [Suspect]
     Indication: ANAESTHESIA
     Dosage: INTRAMUSCULAR
     Route: 030
     Dates: start: 20050501

REACTIONS (1)
  - INJECTION SITE NECROSIS [None]
